FAERS Safety Report 8407846-3 (Version None)
Quarter: 2012Q2

REPORT INFORMATION
  Report Type: 
  Country: None (occurrence: None)
  Receive Date: 20120604
  Receipt Date: 20120523
  Transmission Date: 20120825
  Serious: Yes (Other)
  Sender: FDA-Public Use
  Company Number: DK-BAYER-DK-2004-032302

PATIENT
  Age: 30 Year
  Sex: Female

DRUGS (1)
  1. LEVONORGESTREL [Suspect]
     Indication: MENORRHAGIA
     Dosage: 20 ?G/DAY, CONT
     Route: 015
     Dates: start: 20040721

REACTIONS (3)
  - GALACTORRHOEA [None]
  - METRORRHAGIA [None]
  - VAGINAL HAEMORRHAGE [None]
